FAERS Safety Report 18916762 (Version 1)
Quarter: 2021Q1

REPORT INFORMATION
  Report Type: Report from Study
  Country: NL (occurrence: NL)
  Receive Date: 20210219
  Receipt Date: 20210219
  Transmission Date: 20210420
  Serious: Yes (Other)
  Sender: FDA-Public Use
  Company Number: NL-JNJFOC-20210215895

PATIENT
  Age: 25 Year
  Sex: Female

DRUGS (10)
  1. VITAMIN C [Concomitant]
     Active Substance: ASCORBIC ACID
  2. CITALOPRAM [Concomitant]
     Active Substance: CITALOPRAM HYDROBROMIDE
     Dosage: IN THE MORNING
  3. PARACETAMOL [Concomitant]
     Active Substance: ACETAMINOPHEN
  4. SPRAVATO [Suspect]
     Active Substance: ESKETAMINE
     Indication: DEPRESSION
  5. MIDAZOLAM. [Concomitant]
     Active Substance: MIDAZOLAM
  6. ZOLPIDEM [Concomitant]
     Active Substance: ZOLPIDEM TARTRATE
     Indication: SLEEP DISORDER THERAPY
  7. TRAZODONE [Concomitant]
     Active Substance: TRAZODONE HYDROCHLORIDE
     Indication: SLEEP DISORDER THERAPY
  8. QUETIAPINE. [Concomitant]
     Active Substance: QUETIAPINE
     Indication: SLEEP DISORDER THERAPY
     Dosage: 25 MG TO 50 MG, FOR SLEEP IS NECESSARY
  9. LORAZEPAM. [Concomitant]
     Active Substance: LORAZEPAM
  10. VITAMIN D [ERGOCALCIFEROL] [Concomitant]
     Active Substance: ERGOCALCIFEROL

REACTIONS (3)
  - Intentional self-injury [Unknown]
  - Unresponsive to stimuli [Recovered/Resolved]
  - Suicidal ideation [Unknown]
